FAERS Safety Report 14602986 (Version 1)
Quarter: 2018Q1

REPORT INFORMATION
  Report Type: Spontaneous
  Country: US (occurrence: US)
  Receive Date: 20180306
  Receipt Date: 20180306
  Transmission Date: 20180509
  Serious: No
  Sender: FDA-Public Use
  Company Number: US-PFIZER INC-2018091699

PATIENT
  Age: 72 Year
  Sex: Female

DRUGS (1)
  1. OXYTETRACYCLINE HCL [Suspect]
     Active Substance: OXYTETRACYCLINE HYDROCHLORIDE
     Dosage: UNK
     Dates: start: 20040728

REACTIONS (1)
  - Drug hypersensitivity [Unknown]
